FAERS Safety Report 7549758-3 (Version None)
Quarter: 2011Q2

REPORT INFORMATION
  Report Type: 
  Country: None (occurrence: None)
  Receive Date: 20110615
  Receipt Date: 20070119
  Transmission Date: 20111010
  Serious: Yes (Death, Hospitalization, Other)
  Sender: FDA-Public Use
  Company Number: PHFR2006GB02886

PATIENT
  Sex: Female

DRUGS (2)
  1. CLOZAPINE [Suspect]
     Indication: SCHIZOPHRENIA
     Route: 048
     Dates: start: 20050923, end: 20060926
  2. CLOZAPINE [Suspect]
     Dosage: 25MG DAILY
     Route: 048
     Dates: start: 20061222

REACTIONS (11)
  - DEATH [None]
  - CARDIAC FAILURE [None]
  - BLOOD PRESSURE DECREASED [None]
  - ABDOMINAL INJURY [None]
  - BALANCE DISORDER [None]
  - PULMONARY OEDEMA [None]
  - FALL [None]
  - PNEUMONIA [None]
  - FEMORAL NECK FRACTURE [None]
  - MOBILITY DECREASED [None]
  - DYSPHAGIA [None]
